FAERS Safety Report 10620355 (Version 3)
Quarter: 2015Q1

REPORT INFORMATION
  Report Type: Spontaneous
  Country: US (occurrence: US)
  Receive Date: 20141202
  Receipt Date: 20150115
  Transmission Date: 20150720
  Serious: Yes (Other)
  Sender: FDA-Public Use
  Company Number: US-ELI_LILLY_AND_COMPANY-US201411010548

PATIENT
  Age: 45 Year
  Sex: Male
  Weight: 97.96 kg

DRUGS (3)
  1. HUMALOG [Suspect]
     Active Substance: INSULIN LISPRO
     Dosage: 50 U, BID
     Route: 058
     Dates: start: 201411
  2. HUMALOG [Suspect]
     Active Substance: INSULIN LISPRO
     Indication: TYPE 1 DIABETES MELLITUS
     Dosage: 50 U, BID
     Route: 058
     Dates: end: 201407
  3. HUMALOG [Suspect]
     Active Substance: INSULIN LISPRO
     Indication: TYPE 1 DIABETES MELLITUS
     Dosage: 100 U, QD
     Route: 065
     Dates: start: 201407, end: 201411

REACTIONS (8)
  - Blood glucose increased [Not Recovered/Not Resolved]
  - Blood glucose increased [Unknown]
  - Feeling abnormal [Unknown]
  - Visual acuity reduced [Not Recovered/Not Resolved]
  - Tremor [Not Recovered/Not Resolved]
  - Neuropathy peripheral [Not Recovered/Not Resolved]
  - Wrong drug administered [Recovered/Resolved]
  - Hypoglycaemic unconsciousness [Not Recovered/Not Resolved]

NARRATIVE: CASE EVENT DATE: 201407
